FAERS Safety Report 18264415 (Version 1)
Quarter: 2020Q3

REPORT INFORMATION
  Report Type: Spontaneous
  Country: CA (occurrence: CA)
  Receive Date: 20200914
  Receipt Date: 20200914
  Transmission Date: 20201103
  Serious: Yes (Other)
  Sender: FDA-Public Use
  Company Number: CA-PFIZER INC-2020353012

PATIENT
  Age: 37 Year
  Sex: Male
  Weight: 112 kg

DRUGS (3)
  1. CORTIMENT [BUDESONIDE] [Concomitant]
     Active Substance: BUDESONIDE
     Dosage: 9 MG DAILY
  2. VEDOLIZUMAB [Concomitant]
     Active Substance: VEDOLIZUMAB
     Dosage: 9 MG, DAILY
  3. METHOTREXATE SODIUM. [Suspect]
     Active Substance: METHOTREXATE SODIUM
     Dosage: 15 MG, WEEKLY

REACTIONS (2)
  - Loss of personal independence in daily activities [Unknown]
  - Crohn^s disease [Unknown]
